FAERS Safety Report 4660728-5 (Version None)
Quarter: 2005Q2

REPORT INFORMATION
  Report Type: 
  Country: None (occurrence: None)
  Receive Date: 20050512
  Receipt Date: 20041028
  Transmission Date: 20051028
  Serious: Yes (Hospitalization)
  Sender: FDA-Public Use
  Company Number: US-MERCK-0410USA04280

PATIENT
  Age: 54 Year
  Sex: Female

DRUGS (1)
  1. VIOXX [Suspect]
     Indication: ARTHRITIS
     Route: 048
     Dates: start: 20020515, end: 20030901

REACTIONS (2)
  - BRONCHOPNEUMONIA [None]
  - MYOCARDIAL INFARCTION [None]
